FAERS Safety Report 5481230-7 (Version None)
Quarter: 2007Q4

REPORT INFORMATION
  Report Type: 
  Country: None (occurrence: None)
  Receive Date: 20071010
  Receipt Date: 20071005
  Transmission Date: 20080405
  Serious: Yes (Life-Threatening, Hospitalization)
  Sender: FDA-Public Use
  Company Number: FR-WYE-H00526507

PATIENT
  Age: 23 Year
  Sex: Female

DRUGS (5)
  1. OROKEN [Suspect]
     Route: 048
     Dates: start: 20070130, end: 20070130
  2. ZOPICLONE [Suspect]
     Route: 048
     Dates: start: 20070130, end: 20070130
  3. CITALOPRAM HYDROBROMIDE [Suspect]
     Route: 048
     Dates: start: 20070130, end: 20070130
  4. PARACETAMOL [Suspect]
     Route: 048
     Dates: start: 20070130, end: 20070130
  5. PROPRANOLOL [Suspect]
     Route: 048
     Dates: start: 20070130, end: 20070130

REACTIONS (6)
  - CARDIOGENIC SHOCK [None]
  - CYTOLYTIC HEPATITIS [None]
  - HEPATIC FAILURE [None]
  - INTENTIONAL OVERDOSE [None]
  - PANCREATITIS [None]
  - RENAL FAILURE [None]
